FAERS Safety Report 6140797-6 (Version None)
Quarter: 2009Q2

REPORT INFORMATION
  Report Type: 
  Country: None (occurrence: None)
  Receive Date: 20090402
  Receipt Date: 20080304
  Transmission Date: 20091009
  Serious: No
  Sender: FDA-Public Use
  Company Number: DE-KINGPHARMUSA00001-K200800274

PATIENT
  Sex: Female

DRUGS (4)
  1. SKELAXIN [Suspect]
  2. ALEVE [Suspect]
     Indication: NEURALGIA
     Dosage: 880 MG, QD
     Route: 048
     Dates: start: 20080207, end: 20080221
  3. LEVOXYL [Concomitant]
  4. PRILOSEC [Concomitant]

REACTIONS (1)
  - VOMITING [None]
